FAERS Safety Report 10705266 (Version 9)
Quarter: 2015Q4

REPORT INFORMATION
  Report Type: Report from Study
  Country: AU (occurrence: AU)
  Receive Date: 20150112
  Receipt Date: 20151022
  Transmission Date: 20160304
  Serious: Yes (Hospitalization, Other)
  Sender: FDA-Public Use
  Company Number: AU-GILEAD-2014-0129846

PATIENT
  Age: 65 Year
  Sex: Female
  Weight: 64.6 kg

DRUGS (21)
  1. VANCOMYCIN [Suspect]
     Active Substance: VANCOMYCIN
     Indication: PRODUCT USED FOR UNKNOWN INDICATION
     Dosage: 1 G, UNK
     Route: 042
     Dates: start: 2014
  2. IDELALISIB [Suspect]
     Active Substance: IDELALISIB
     Indication: CHRONIC LYMPHOCYTIC LEUKAEMIA
     Dosage: 150 MG, BID
     Route: 048
     Dates: start: 20141216, end: 20141226
  3. RITUXIMAB [Suspect]
     Active Substance: RITUXIMAB
     Indication: CHRONIC LYMPHOCYTIC LEUKAEMIA
     Dosage: 600 MG, CYCLICAL
     Route: 042
     Dates: start: 20141216, end: 20141216
  4. FILGRASTIM [Concomitant]
     Active Substance: FILGRASTIM
     Route: 065
  5. PANADOL [Concomitant]
     Active Substance: ACETAMINOPHEN
     Indication: BACK PAIN
     Route: 048
     Dates: start: 2012
  6. SYMBICORT [Concomitant]
     Active Substance: BUDESONIDE\FORMOTEROL FUMARATE DIHYDRATE
     Indication: ASTHMA
     Route: 055
     Dates: start: 2004
  7. PERINDOPRIL [Concomitant]
     Active Substance: PERINDOPRIL
     Indication: HYPERTENSION
     Route: 048
     Dates: start: 201407
  8. BENDAMUSTINE [Suspect]
     Active Substance: BENDAMUSTINE
     Dosage: 150 MG, ONCE
     Route: 042
     Dates: start: 20141217, end: 20141217
  9. SOMAC [Concomitant]
     Active Substance: PANTOPRAZOLE SODIUM
     Indication: GASTROOESOPHAGEAL REFLUX DISEASE
     Route: 048
     Dates: start: 200904
  10. LOPERAMIDE [Concomitant]
     Active Substance: LOPERAMIDE
  11. BENDAMUSTINE [Suspect]
     Active Substance: BENDAMUSTINE
     Indication: CHRONIC LYMPHOCYTIC LEUKAEMIA
     Dosage: 150 MG, ONCE
     Route: 042
     Dates: start: 20141216, end: 20141216
  12. PANADOL [Concomitant]
     Active Substance: ACETAMINOPHEN
     Indication: ARTHRALGIA
  13. IDELALISIB [Suspect]
     Active Substance: IDELALISIB
     Dosage: UNK
     Route: 048
  14. ASPIRIN                            /00002701/ [Concomitant]
     Active Substance: ASPIRIN
     Route: 048
     Dates: start: 2009
  15. ATORVASTATIN                       /01326102/ [Concomitant]
     Active Substance: ATORVASTATIN
     Indication: HYPERLIPIDAEMIA
     Route: 048
     Dates: start: 2009
  16. CALTRATE PLUS                      /06018001/ [Concomitant]
     Indication: SUPPLEMENTATION THERAPY
     Route: 048
     Dates: start: 2003
  17. GLUCOSAMINE + CHONDROITIN          /08437701/ [Concomitant]
     Route: 048
     Dates: start: 2003
  18. VITAMIN B12                        /07503801/ [Concomitant]
     Route: 048
     Dates: start: 2013
  19. METOCLOPRAMIDE                     /00041902/ [Concomitant]
     Active Substance: METOCLOPRAMIDE HYDROCHLORIDE
     Indication: NAUSEA
     Dosage: UNK
     Dates: start: 20141227, end: 20150117
  20. SALBUTAMOL [Concomitant]
     Active Substance: ALBUTEROL
     Indication: ASTHMA
     Route: 055
     Dates: start: 2004
  21. ALLOPURINOL. [Concomitant]
     Active Substance: ALLOPURINOL

REACTIONS (12)
  - Diarrhoea [None]
  - Vasculitis [None]
  - Renal tubular acidosis [Recovered/Resolved]
  - Sepsis [Recovered/Resolved]
  - Pneumonia [None]
  - Abdominal pain [None]
  - Blood alkaline phosphatase increased [None]
  - Oropharyngeal pain [None]
  - Neutropenia [None]
  - Atelectasis [None]
  - Pleural effusion [None]
  - Rash [Recovered/Resolved]

NARRATIVE: CASE EVENT DATE: 20141227
